FAERS Safety Report 6148378-5 (Version None)
Quarter: 2009Q2

REPORT INFORMATION
  Report Type: 
  Country: None (occurrence: None)
  Receive Date: 20090402
  Receipt Date: 20090105
  Transmission Date: 20091009
  Serious: No
  Sender: FDA-Public Use
  Company Number: 1000004210

PATIENT
  Age: 72 Year
  Sex: Female

DRUGS (4)
  1. BYSTOLIC [Suspect]
     Indication: BLOOD PRESSURE INCREASED
     Dosage: 10 MG (10 MG,1 IN 1 D),ORAL
     Route: 048
     Dates: start: 20081001
  2. ZOCOR [Concomitant]
  3. VITAMINS [Concomitant]
  4. FISH OIL (FISH OIL) (FISH OIL) [Concomitant]

REACTIONS (1)
  - POLLAKIURIA [None]
